FAERS Safety Report 8004932-7 (Version None)
Quarter: 2011Q4

REPORT INFORMATION
  Report Type: 
  Country: None (occurrence: None)
  Receive Date: 20111223
  Receipt Date: 20111214
  Transmission Date: 20120403
  Serious: Yes (Death, Other)
  Sender: FDA-Public Use
  Company Number: JP-GENZYME-THYM-1003000

PATIENT
  Sex: Male
  Weight: 47 kg

DRUGS (11)
  1. ETOPOSIDE [Concomitant]
     Indication: ACUTE MYELOID LEUKAEMIA
     Dosage: UNK
     Route: 065
     Dates: start: 20101105, end: 20101106
  2. METHYLPREDNISOLONE SODIUM SUCCINATE [Concomitant]
     Indication: PROPHYLAXIS AGAINST GRAFT VERSUS HOST DISEASE
     Dosage: UNK
     Route: 065
     Dates: start: 20101113, end: 20101129
  3. SULFAMETHOPRIM [Concomitant]
     Indication: INFECTION PROPHYLAXIS
     Dosage: UNK
     Route: 065
     Dates: start: 20101101, end: 20110227
  4. BUSULFAN [Concomitant]
     Indication: ACUTE MYELOID LEUKAEMIA
     Dosage: UNK
     Route: 065
     Dates: start: 20101107, end: 20101108
  5. CIPROFLOXACIN [Concomitant]
     Indication: INFECTION PROPHYLAXIS
     Dosage: UNK
     Route: 065
     Dates: start: 20110208, end: 20110224
  6. ACYCLOVIR [Concomitant]
     Indication: INFECTION PROPHYLAXIS
     Dosage: UNK
     Route: 065
     Dates: start: 20101111, end: 20101203
  7. FLUDARA [Concomitant]
     Indication: ACUTE MYELOID LEUKAEMIA
     Dosage: UNK
     Route: 065
     Dates: start: 20101105, end: 20101110
  8. TACROLIMUS [Concomitant]
     Indication: PROPHYLAXIS AGAINST GRAFT VERSUS HOST DISEASE
     Dosage: UNK
     Route: 065
     Dates: start: 20101111, end: 20110217
  9. ITRACONAZOLE [Concomitant]
     Indication: INFECTION PROPHYLAXIS
     Dosage: UNK
     Route: 065
     Dates: start: 20101101, end: 20110217
  10. MELPHALAN HYDROCHLORIDE [Concomitant]
     Indication: ACUTE MYELOID LEUKAEMIA
     Dosage: UNK
     Route: 065
     Dates: start: 20101109, end: 20101110
  11. THYMOGLOBULIN [Suspect]
     Indication: BONE MARROW CONDITIONING REGIMEN
     Dosage: 118 MG, QD
     Route: 042
     Dates: start: 20101110, end: 20101110

REACTIONS (2)
  - ACUTE GRAFT VERSUS HOST DISEASE IN SKIN [None]
  - CEREBRAL HAEMORRHAGE [None]
